FAERS Safety Report 25720182 (Version 2)
Quarter: 2025Q4

REPORT INFORMATION
  Report Type: Spontaneous
  Country: US (occurrence: US)
  Receive Date: 20250825
  Receipt Date: 20251110
  Transmission Date: 20260119
  Serious: No
  Sender: SANOFI AVENTIS
  Company Number: US-SA-2025SA251333

PATIENT
  Age: 47 Year
  Sex: Female

DRUGS (2)
  1. DUPIXENT [Suspect]
     Active Substance: DUPILUMAB
     Indication: Chronic rhinosinusitis with nasal polyps
     Dosage: 300 MG, QOW
     Route: 058
  2. DUPIXENT [Suspect]
     Active Substance: DUPILUMAB
     Dosage: 300 MG, QOW
     Route: 058
     Dates: start: 202506

REACTIONS (6)
  - Rebound effect [Unknown]
  - Nasopharyngitis [Unknown]
  - Injection site pain [Unknown]
  - Chronic rhinosinusitis with nasal polyps [Unknown]
  - Condition aggravated [Unknown]
  - Anosmia [Unknown]

NARRATIVE: CASE EVENT DATE: 20250101
